FAERS Safety Report 26124628 (Version 1)
Quarter: 2025Q4

REPORT INFORMATION
  Report Type: Spontaneous
  Country: US (occurrence: US)
  Receive Date: 20251205
  Receipt Date: 20251205
  Transmission Date: 20260118
  Serious: No
  Sender: ITALFARMACO SPA
  Company Number: US-ITALFARMACO SPA-2189909

PATIENT
  Sex: Male
  Weight: 21.06 kg

DRUGS (8)
  1. DUVYZAT [Suspect]
     Active Substance: GIVINOSTAT
     Indication: Duchenne muscular dystrophy
     Dates: start: 20250522
  2. AGAMREE [Concomitant]
     Active Substance: VAMOROLONE
  3. ZOLOFT [Concomitant]
     Active Substance: SERTRALINE HYDROCHLORIDE
  4. RISPERIDONE [Concomitant]
     Active Substance: RISPERIDONE
  5. PEPCID [Concomitant]
     Active Substance: FAMOTIDINE
  6. LISINOPRIL [Concomitant]
     Active Substance: LISINOPRIL
  7. FLUTICASONE [Concomitant]
     Active Substance: FLUTICASONE
  8. EPINEPHRINE [Concomitant]
     Active Substance: EPINEPHRINE

REACTIONS (1)
  - Platelet count decreased [Unknown]
